FAERS Safety Report 20700474 (Version 1)
Quarter: 2022Q2

REPORT INFORMATION
  Report Type: Spontaneous
  Country: US (occurrence: US)
  Receive Date: 20220412
  Receipt Date: 20220412
  Transmission Date: 20220721
  Serious: Yes (Other)
  Sender: FDA-Public Use
  Company Number: US-MEDEXUS PHARMA, INC.-2022MED00168

PATIENT
  Age: 79 Year
  Sex: Female
  Weight: 90.718 kg

DRUGS (6)
  1. RASUVO [Suspect]
     Active Substance: METHOTREXATE SODIUM
     Indication: Rheumatoid arthritis
     Dosage: UNK UNK, 1X/WEEK ON WEDNESDAYS
     Dates: end: 20211103
  2. RASUVO [Suspect]
     Active Substance: METHOTREXATE SODIUM
     Dosage: UNK UNK, 1X/WEEK ON WEDNESDAYS
     Dates: start: 20220209
  3. LISINOPRIL [Concomitant]
     Active Substance: LISINOPRIL
  4. PRAVASTATIN [Concomitant]
     Active Substance: PRAVASTATIN
  5. HYDROXYZINE [Concomitant]
     Active Substance: HYDROXYZINE HYDROCHLORIDE
  6. BYSTOLIC [Concomitant]
     Active Substance: NEBIVOLOL HYDROCHLORIDE

REACTIONS (2)
  - Fall [Recovered/Resolved]
  - Ankle fracture [Recovered/Resolved]

NARRATIVE: CASE EVENT DATE: 20211031
